FAERS Safety Report 26046005 (Version 1)
Quarter: 2025Q4

REPORT INFORMATION
  Report Type: Spontaneous
  Country: EU (occurrence: EU)
  Receive Date: 20251114
  Receipt Date: 20251114
  Transmission Date: 20260118
  Serious: Yes (Life-Threatening)
  Sender: RANBAXY
  Company Number: EU-AFSSAPS-AN2025000964

PATIENT
  Age: 85 Year
  Sex: Male
  Weight: 70 kg

DRUGS (4)
  1. CLOPIDOGREL [Interacting]
     Active Substance: CLOPIDOGREL BISULFATE
     Indication: Prophylaxis
     Dosage: 75 MILLIGRAM, DAILY
     Route: 048
     Dates: start: 20250417, end: 20250421
  2. HEPARIN [Interacting]
     Active Substance: HEPARIN SODIUM
     Indication: Thrombosis
     Dosage: 14000 INTERNATIONAL UNIT, UNK
     Route: 040
     Dates: start: 20250416, end: 20250417
  3. HEPARIN [Interacting]
     Active Substance: HEPARIN SODIUM
     Dosage: 25000 INTERNATIONAL UNIT, UNK
     Route: 040
     Dates: start: 20250417, end: 20250423
  4. KARDEGIC [Interacting]
     Active Substance: ASPIRIN DL-LYSINE
     Indication: Prophylaxis
     Dosage: 75 MILLIGRAM, DAILY
     Route: 048
     Dates: end: 20250422

REACTIONS (2)
  - Muscle haemorrhage [Recovered/Resolved]
  - Drug interaction [Recovered/Resolved]

NARRATIVE: CASE EVENT DATE: 20250423
